FAERS Safety Report 19181984 (Version 5)
Quarter: 2021Q3

REPORT INFORMATION
  Report Type: Spontaneous
  Country: US (occurrence: US)
  Receive Date: 20210427
  Receipt Date: 20210816
  Transmission Date: 20211014
  Serious: Yes (Other)
  Sender: FDA-Public Use
  Company Number: US-SA-2021SA133162

PATIENT
  Age: 44 Year
  Sex: Female

DRUGS (45)
  1. EPINEPHRINE. [Concomitant]
     Active Substance: EPINEPHRINE
     Dosage: 5MG
  2. REVATIO [Concomitant]
     Active Substance: SILDENAFIL CITRATE
  3. ALDACTONE [Concomitant]
     Active Substance: SPIRONOLACTONE
  4. BOTOX [Concomitant]
     Active Substance: ONABOTULINUMTOXINA
     Dosage: 100 UNIT VIAL
  5. SYNTHROID [Concomitant]
     Active Substance: LEVOTHYROXINE SODIUM
  6. EPINEPHRINE. [Concomitant]
     Active Substance: EPINEPHRINE
     Dosage: 0.15MG/0.3
  7. ALLEGRA ALLERGY [Concomitant]
     Active Substance: FEXOFENADINE HYDROCHLORIDE
  8. IRON [Concomitant]
     Active Substance: IRON
     Dosage: 325(65) MG TABLET
  9. MAGNESIUM [Concomitant]
     Active Substance: MAGNESIUM
  10. NEURONTIN [Concomitant]
     Active Substance: GABAPENTIN
  11. TRACLEER [Concomitant]
     Active Substance: BOSENTAN
  12. ALDACTONE [Concomitant]
     Active Substance: SPIRONOLACTONE
  13. CITRACAL 250+D [Concomitant]
     Dosage: 250 MG?200
  14. REMODULIN [Suspect]
     Active Substance: TREPROSTINIL
     Dosage: 10 MG/ML VIAL
  15. SINGULAIR [Concomitant]
     Active Substance: MONTELUKAST SODIUM
  16. SINGULAIR [Concomitant]
     Active Substance: MONTELUKAST SODIUM
  17. PROTONIX [OMEPRAZOLE] [Concomitant]
     Active Substance: OMEPRAZOLE
  18. CALCITRIOL. [Concomitant]
     Active Substance: CALCITRIOL
  19. RIBOFLAVIN [Concomitant]
     Active Substance: RIBOFLAVIN
  20. REVATIO [Concomitant]
     Active Substance: SILDENAFIL CITRATE
  21. NEURONTIN [Concomitant]
     Active Substance: GABAPENTIN
  22. TRACLEER [Concomitant]
     Active Substance: BOSENTAN
  23. OXYGEN. [Concomitant]
     Active Substance: OXYGEN
  24. SYNTHROID [Concomitant]
     Active Substance: LEVOTHYROXINE SODIUM
  25. XYZAL [Concomitant]
     Active Substance: LEVOCETIRIZINE DIHYDROCHLORIDE
  26. PROTONIX [OMEPRAZOLE] [Concomitant]
     Active Substance: OMEPRAZOLE
  27. CELEXA [Concomitant]
     Active Substance: CITALOPRAM HYDROBROMIDE
  28. TRILEPTAL [Concomitant]
     Active Substance: OXCARBAZEPINE
  29. CALCITRIOL. [Concomitant]
     Active Substance: CALCITRIOL
  30. RIBOFLAVIN [Concomitant]
     Active Substance: RIBOFLAVIN
     Dosage: 50 MG
  31. HYDROCHLOROTHIAZIDE. [Concomitant]
     Active Substance: HYDROCHLOROTHIAZIDE
  32. IRON [Concomitant]
     Active Substance: IRON
  33. AUBAGIO [Suspect]
     Active Substance: TERIFLUNOMIDE
     Indication: MULTIPLE SCLEROSIS
     Dosage: 14 MG, QD
     Route: 048
     Dates: start: 20191210
  34. BOTOX [Concomitant]
     Active Substance: ONABOTULINUMTOXINA
  35. XYZAL [Concomitant]
     Active Substance: LEVOCETIRIZINE DIHYDROCHLORIDE
  36. XANAX [Concomitant]
     Active Substance: ALPRAZOLAM
  37. COUMADIN [Concomitant]
     Active Substance: WARFARIN SODIUM
  38. HYDROCHLOROTHIAZIDE. [Concomitant]
     Active Substance: HYDROCHLOROTHIAZIDE
  39. VITAMIN D3 [Concomitant]
     Active Substance: CHOLECALCIFEROL
  40. XANAX [Concomitant]
     Active Substance: ALPRAZOLAM
  41. COUMADIN [Concomitant]
     Active Substance: WARFARIN SODIUM
  42. VITAMIN B12 [Concomitant]
     Active Substance: CYANOCOBALAMIN
  43. ALLEGRA ALLERGY [Concomitant]
     Active Substance: FEXOFENADINE HYDROCHLORIDE
  44. TRILEPTAL [Concomitant]
     Active Substance: OXCARBAZEPINE
  45. VITAMIN D3 [Concomitant]
     Active Substance: CHOLECALCIFEROL

REACTIONS (8)
  - Migraine [Unknown]
  - Drug delivery system issue [Unknown]
  - Diarrhoea [Recovered/Resolved]
  - Thyroid disorder [Unknown]
  - Flushing [Recovered/Resolved]
  - Seizure [Unknown]
  - Anxiety [Unknown]
  - Illness [Recovered/Resolved]

NARRATIVE: CASE EVENT DATE: 202104
